FAERS Safety Report 12664807 (Version 1)
Quarter: 2016Q3

REPORT INFORMATION
  Report Type: Spontaneous
  Country: US (occurrence: US)
  Receive Date: 20160818
  Receipt Date: 20160818
  Transmission Date: 20161109
  Serious: No
  Sender: FDA-Public Use
  Company Number: US-FRI-1000079205

PATIENT
  Sex: Female

DRUGS (3)
  1. ESTROTEST [Concomitant]
     Indication: HORMONE REPLACEMENT THERAPY
  2. CELEXA [Suspect]
     Active Substance: CITALOPRAM HYDROBROMIDE
     Indication: DEPRESSION
     Dosage: 50MG
     Route: 048
  3. ATORVASTATIN [Concomitant]
     Active Substance: ATORVASTATIN
     Indication: BLOOD CHOLESTEROL INCREASED
     Dosage: 10MG
     Route: 048

REACTIONS (3)
  - Increased tendency to bruise [Not Recovered/Not Resolved]
  - Laceration [Not Recovered/Not Resolved]
  - Prescribed overdose [Not Recovered/Not Resolved]
